FAERS Safety Report 5952417-1 (Version None)
Quarter: 2008Q4

REPORT INFORMATION
  Report Type: 
  Country: None (occurrence: None)
  Receive Date: 20081113
  Receipt Date: 20081103
  Transmission Date: 20090506
  Serious: Yes (Other)
  Sender: FDA-Public Use
  Company Number: CN-PFIZER INC-2008094712

PATIENT
  Sex: Male

DRUGS (2)
  1. METHYLPREDNISOLONE SODIUM SUCCINATE [Suspect]
     Indication: SEVERE ACUTE RESPIRATORY SYNDROME
     Route: 042
     Dates: start: 20030101, end: 20030101
  2. PREDNISONE TAB [Suspect]
     Indication: SEVERE ACUTE RESPIRATORY SYNDROME
     Route: 048
     Dates: start: 20030101, end: 20030101

REACTIONS (1)
  - OSTEONECROSIS [None]
